FAERS Safety Report 5606508-5 (Version None)
Quarter: 2008Q1

REPORT INFORMATION
  Report Type: 
  Country: None (occurrence: None)
  Receive Date: 20080129
  Receipt Date: 20080121
  Transmission Date: 20080703
  Serious: Yes (Disabling)
  Sender: FDA-Public Use
  Company Number: A0705264A

PATIENT
  Age: 64 Year
  Sex: Female

DRUGS (5)
  1. LAMOTRIGINE [Suspect]
     Dosage: 350MGD PER DAY
     Route: 048
     Dates: start: 20070618, end: 20080117
  2. LITHIUM CARBONATE [Concomitant]
     Dosage: 600MGD PER DAY
     Route: 048
  3. UNSPECIFIED MEDICATION [Concomitant]
     Indication: ANXIETY
     Dosage: 100MGD PER DAY
     Route: 048
  4. SEROQUEL [Concomitant]
     Dosage: 300MGD PER DAY
     Route: 048
  5. CLONAZEPAM [Concomitant]
     Indication: ANXIETY
     Dosage: 1MGD PER DAY
     Route: 048

REACTIONS (4)
  - DENTAL CARIES [None]
  - TOOTH DISORDER [None]
  - TOOTH EROSION [None]
  - TOOTH EXTRACTION [None]
